FAERS Safety Report 18822958 (Version 1)
Quarter: 2021Q1

REPORT INFORMATION
  Report Type: Spontaneous
  Country: US (occurrence: US)
  Receive Date: 20210201
  Receipt Date: 20210201
  Transmission Date: 20210419
  Serious: No
  Sender: FDA-Public Use
  Company Number: US-EPIHEALTH-2020-US-011549

PATIENT
  Age: 38 Year
  Sex: Female

DRUGS (1)
  1. RHOFADE [Suspect]
     Active Substance: OXYMETAZOLINE HYDROCHLORIDE
     Indication: ROSACEA
     Dosage: APPLIED ONCE DAILY IN AM TO FACE
     Dates: start: 20200529, end: 20200603

REACTIONS (3)
  - Application site pruritus [Recovered/Resolved]
  - Application site erythema [Recovering/Resolving]
  - Rash papular [Recovering/Resolving]

NARRATIVE: CASE EVENT DATE: 20200531
